FAERS Safety Report 17385827 (Version 1)
Quarter: 2020Q1

REPORT INFORMATION
  Report Type: Spontaneous
  Country: US (occurrence: US)
  Receive Date: 20200206
  Receipt Date: 20200206
  Transmission Date: 20200409
  Serious: No
  Sender: FDA-Public Use
  Company Number: US-ABBVIE-19K-163-3195277-00

PATIENT

DRUGS (1)
  1. HUMIRA [Suspect]
     Active Substance: ADALIMUMAB
     Indication: CROHN^S DISEASE
     Dosage: TOOK 4 INJECTIONS FIRST TIME (160MG)
     Route: 058

REACTIONS (3)
  - Fatigue [Unknown]
  - Injection site pain [Unknown]
  - Headache [Unknown]
